FAERS Safety Report 5080632-0 (Version None)
Quarter: 2006Q3

REPORT INFORMATION
  Report Type: 
  Country: None (occurrence: None)
  Receive Date: 20060815
  Receipt Date: 20060301
  Transmission Date: 20061208
  Serious: Yes (Hospitalization)
  Sender: FDA-Public Use
  Company Number: AU-BOEHRINGER INGELHEIM PHARMACEUTICALS, INC.-2006-BP-02377AU

PATIENT
  Sex: Female
  Weight: 66 kg

DRUGS (3)
  1. MOBIC [Suspect]
     Indication: OSTEOARTHRITIS
     Route: 048
     Dates: start: 20040831, end: 20060101
  2. ASPIRIN [Suspect]
     Indication: CARDIAC DISORDER
     Route: 048
  3. OMEPRAZOLE [Concomitant]

REACTIONS (5)
  - DUODENAL STENOSIS [None]
  - GASTRIC ULCER [None]
  - MEDICATION ERROR [None]
  - OBSTRUCTION GASTRIC [None]
  - PEPTIC ULCER [None]
